FAERS Safety Report 17817694 (Version 1)
Quarter: 2020Q2

REPORT INFORMATION
  Report Type: Spontaneous
  Country: GB (occurrence: GB)
  Receive Date: 20200522
  Receipt Date: 20200522
  Transmission Date: 20200714
  Serious: Yes (Life-Threatening)
  Sender: FDA-Public Use
  Company Number: GB-TEVA-2020-GB-1237275

PATIENT
  Age: 68 Year
  Sex: Female
  Weight: 51 kg

DRUGS (4)
  1. INDAPAMIDE. [Concomitant]
     Active Substance: INDAPAMIDE
     Dosage: 1 DOSAGE FORMS DAILY;
     Dates: start: 20191213
  2. TRIMETHOPRIM. [Concomitant]
     Active Substance: TRIMETHOPRIM
     Dosage: 2 DOSAGEFORM
     Dates: start: 20200428
  3. LOSARTAN. [Concomitant]
     Active Substance: LOSARTAN
     Dosage: 1 DOSAGEFORM
     Dates: start: 20191213
  4. NITROFURANTOIN. [Suspect]
     Active Substance: NITROFURANTOIN
     Dosage: 100 MILLIGRAM
     Dates: start: 20200424

REACTIONS (1)
  - Anaphylactic shock [Recovered/Resolved]

NARRATIVE: CASE EVENT DATE: 20200430
